FAERS Safety Report 7677920-8 (Version None)
Quarter: 2011Q3

REPORT INFORMATION
  Report Type: 
  Country: None (occurrence: None)
  Receive Date: 20110811
  Receipt Date: 20110801
  Transmission Date: 20111222
  Serious: Yes (Other)
  Sender: FDA-Public Use
  Company Number: IL-ALEXION-A201101190

PATIENT
  Sex: Male

DRUGS (9)
  1. PREDNISONE [Concomitant]
     Dosage: 20 MG UNK
  2. OMEPRADEX [Concomitant]
     Dosage: 20 MG UNK
  3. CALCIUM + VITAMIN D [Concomitant]
     Dosage: UNK
  4. CARDILOC [Concomitant]
     Dosage: 12.5 MG X 2 UNK
  5. RESPRIM FORTE [Concomitant]
     Dosage: UNK 2X WEEK
  6. SOLIRIS [Suspect]
     Indication: PAROXYSMAL NOCTURNAL HAEMOGLOBINURIA
     Dosage: 600 MG, QW
     Route: 042
     Dates: start: 20110711, end: 20110801
  7. FUSID [Concomitant]
     Dosage: 40 MG UNK
  8. SIMVASTATIN [Concomitant]
     Dosage: 20 MG UNK
  9. FEXOFENADINE HCL [Concomitant]
     Dosage: 180 MG UNK

REACTIONS (4)
  - ALANINE AMINOTRANSFERASE INCREASED [None]
  - GAMMA-GLUTAMYLTRANSFERASE INCREASED [None]
  - ASPARTATE AMINOTRANSFERASE INCREASED [None]
  - BLOOD ALKALINE PHOSPHATASE INCREASED [None]
